FAERS Safety Report 4953272-9 (Version None)
Quarter: 2006Q1

REPORT INFORMATION
  Report Type: 
  Country: None (occurrence: None)
  Receive Date: 20060324
  Receipt Date: 20060303
  Transmission Date: 20060701
  Serious: Yes (Other)
  Sender: FDA-Public Use
  Company Number: ES-BRISTOL-MYERS SQUIBB COMPANY-13302161

PATIENT
  Age: 13 Year
  Sex: Male
  Weight: 60 kg

DRUGS (2)
  1. ABILIFY [Suspect]
     Indication: AUTISM
     Route: 048
     Dates: start: 20050408
  2. TRANXILIUM [Concomitant]
     Indication: AKATHISIA
     Dosage: DOSE VALUE:  5 TO 10 MG.
     Dates: start: 20060126

REACTIONS (1)
  - GRAND MAL CONVULSION [None]
